FAERS Safety Report 5175850-7 (Version None)
Quarter: 2006Q4

REPORT INFORMATION
  Report Type: 
  Country: None (occurrence: None)
  Receive Date: 20061215
  Receipt Date: 20060302
  Transmission Date: 20070319
  Serious: Yes (Other)
  Sender: FDA-Public Use
  Company Number: PHBS2006FI03542

PATIENT
  Age: 31 Year
  Sex: Female
  Weight: 75 kg

DRUGS (4)
  1. TRILEPTAL [Suspect]
     Indication: EPILEPSY
     Dosage: 150 MG, QD
     Route: 048
     Dates: start: 20060218, end: 20060220
  2. TRILEPTAL [Suspect]
     Dosage: 150 MG, BID
     Route: 048
     Dates: start: 20060221, end: 20060223
  3. TRILEPTAL [Suspect]
     Dosage: 450 MG/DAY
     Route: 048
     Dates: start: 20060224, end: 20060626
  4. TRILEPTAL [Suspect]
     Dosage: 300 MG, BID
     Route: 048
     Dates: start: 20060227, end: 20060301

REACTIONS (5)
  - DRUG EXPOSURE DURING PREGNANCY [None]
  - DRUG EXPOSURE VIA BREAST MILK [None]
  - PREGNANCY INDUCED HYPERTENSION [None]
  - SLEEP DISORDER [None]
  - SUPPRESSED LACTATION [None]
